FAERS Safety Report 16175182 (Version 1)
Quarter: 2019Q2

REPORT INFORMATION
  Report Type: Spontaneous
  Country: US (occurrence: US)
  Receive Date: 20190409
  Receipt Date: 20190409
  Transmission Date: 20190711
  Serious: No
  Sender: FDA-Public Use
  Company Number: US-JNJFOC-20190334817

PATIENT
  Age: 82 Year
  Sex: Male

DRUGS (2)
  1. ASPIRIN. [Suspect]
     Active Substance: ASPIRIN
     Indication: TOOTHACHE
     Dosage: AS DIRECTED BY HIS DOCTOR
     Route: 065
  2. TYLENOL EXTRA STRENGTH [Suspect]
     Active Substance: ACETAMINOPHEN
     Indication: TOOTHACHE
     Dosage: ONCE
     Route: 048
     Dates: start: 20190320, end: 20190320

REACTIONS (2)
  - Blood urine present [Unknown]
  - Expired product administered [Unknown]

NARRATIVE: CASE EVENT DATE: 20190320
